FAERS Safety Report 6055519-7 (Version None)
Quarter: 2009Q1

REPORT INFORMATION
  Report Type: 
  Country: None (occurrence: None)
  Receive Date: 20090128
  Receipt Date: 20090128
  Transmission Date: 20090719
  Serious: Yes (Hospitalization, Other)
  Sender: FDA-Public Use
  Company Number: A0765328A

PATIENT
  Age: 55 Year
  Sex: Male

DRUGS (3)
  1. SERETIDE [Suspect]
     Indication: BRONCHITIS
     Route: 055
     Dates: start: 20081001
  2. MIOFLEX [Suspect]
     Indication: DRUG USE FOR UNKNOWN INDICATION
     Dates: start: 20090119
  3. TENORETIC 100 [Concomitant]
     Dates: start: 20060101

REACTIONS (5)
  - ERYTHEMA [None]
  - HYPERSENSITIVITY [None]
  - NODULE [None]
  - PRURITUS [None]
  - SYNCOPE [None]
